FAERS Safety Report 18179487 (Version 1)
Quarter: 2020Q3

REPORT INFORMATION
  Report Type: Spontaneous
  Country: US (occurrence: US)
  Receive Date: 20200820
  Receipt Date: 20200820
  Transmission Date: 20201103
  Serious: Yes (Hospitalization)
  Sender: FDA-Public Use
  Company Number: None

PATIENT
  Age: 76 Year
  Sex: Male
  Weight: 78.3 kg

DRUGS (12)
  1. ZOSYN [Concomitant]
     Active Substance: PIPERACILLIN SODIUM\TAZOBACTAM SODIUM
     Dates: start: 20200814, end: 20200815
  2. DOCUSATE [Concomitant]
     Active Substance: DOCUSATE
     Dates: start: 20200811
  3. ENOXAPARIN [Concomitant]
     Active Substance: ENOXAPARIN
     Dates: start: 20200811
  4. ATIVAN [Concomitant]
     Active Substance: LORAZEPAM
     Dates: start: 20200812, end: 20200813
  5. ZINC SULFATE. [Concomitant]
     Active Substance: ZINC SULFATE
     Dates: start: 20200813
  6. ASORBIC ACID [Concomitant]
     Dates: start: 20200812
  7. THIAMINE. [Concomitant]
     Active Substance: THIAMINE
     Dates: start: 20200812, end: 20200816
  8. REMDESIVIR. [Suspect]
     Active Substance: REMDESIVIR
     Indication: COVID-19
     Dates: start: 20200812, end: 20200814
  9. ACETAMINOPHEN. [Concomitant]
     Active Substance: ACETAMINOPHEN
     Dates: start: 20200811
  10. ALBUTEROL SULFATE. [Concomitant]
     Active Substance: ALBUTEROL SULFATE
     Dates: start: 20200812
  11. CLONIDIPINE 0.1MG PATCH [Concomitant]
     Dates: start: 20200812
  12. DEXAMETHASONE. [Concomitant]
     Active Substance: DEXAMETHASONE
     Dates: start: 20200812

REACTIONS (2)
  - Alanine aminotransferase increased [None]
  - Aspartate aminotransferase increased [None]

NARRATIVE: CASE EVENT DATE: 20200814
